FAERS Safety Report 5823268-3 (Version None)
Quarter: 2008Q3

REPORT INFORMATION
  Report Type: 
  Country: None (occurrence: None)
  Receive Date: 20080724
  Receipt Date: 20080724
  Transmission Date: 20090109
  Serious: Yes (Hospitalization)
  Sender: FDA-Public Use
  Company Number: None

PATIENT
  Sex: Female
  Weight: 77.73 kg

DRUGS (3)
  1. CARBOPLATIN [Suspect]
     Dosage: 493 MG
  2. TAXOL [Suspect]
     Dosage: 317 MG
  3. NEULASTA [Suspect]
     Dosage: 6 MG

REACTIONS (8)
  - ASCITES [None]
  - BLOOD SODIUM DECREASED [None]
  - CONSTIPATION [None]
  - DYSPNOEA [None]
  - HAEMATOCRIT DECREASED [None]
  - HAEMOGLOBIN DECREASED [None]
  - NAUSEA [None]
  - OEDEMA [None]
